FAERS Safety Report 11222366 (Version 1)
Quarter: 2015Q2

REPORT INFORMATION
  Report Type: Spontaneous
  Country: CA (occurrence: CA)
  Receive Date: 20150626
  Receipt Date: 20150626
  Transmission Date: 20150821
  Serious: Yes (Other)
  Sender: FDA-Public Use
  Company Number: CA-TEVA-573573USA

PATIENT
  Age: 56 Year
  Sex: Female

DRUGS (5)
  1. VITAMIN D [Concomitant]
     Active Substance: CHOLECALCIFEROL
  2. ALERTEC [Suspect]
     Active Substance: MODAFINIL
     Route: 065
  3. ALTACE [Concomitant]
     Active Substance: RAMIPRIL
  4. COPAXONE [Concomitant]
     Active Substance: GLATIRAMER ACETATE
     Indication: MULTIPLE SCLEROSIS
     Dosage: 20 MILLIGRAM DAILY; COPAXONE 20MG/ML
     Route: 058
     Dates: start: 20150512
  5. PAXIL [Concomitant]
     Active Substance: PAROXETINE HYDROCHLORIDE

REACTIONS (4)
  - Adverse event [Recovering/Resolving]
  - Feeling jittery [Recovering/Resolving]
  - Paraesthesia [Recovering/Resolving]
  - Myelitis transverse [Recovering/Resolving]

NARRATIVE: CASE EVENT DATE: 201506
